FAERS Safety Report 8609715-2 (Version None)
Quarter: 2012Q3

REPORT INFORMATION
  Report Type: 
  Country: None (occurrence: None)
  Receive Date: 20120821
  Receipt Date: 20120814
  Transmission Date: 20120928
  Serious: Yes (Death, Other)
  Sender: FDA-Public Use
  Company Number: US-CELGENEUS-163-21880-11101386

PATIENT
  Sex: Female

DRUGS (1)
  1. REVLIMID [Suspect]
     Indication: MALIGNANT PERITONEAL NEOPLASM
     Dosage: 10 MILLIGRAM
     Route: 048
     Dates: start: 20110324, end: 20110726

REACTIONS (3)
  - HAEMOGLOBIN DECREASED [None]
  - DISEASE PROGRESSION [None]
  - DEATH [None]
